FAERS Safety Report 8691742 (Version 3)
Quarter: 2013Q1

REPORT INFORMATION
  Report Type: Spontaneous
  Country: IT (occurrence: IT)
  Receive Date: 20120730
  Receipt Date: 20130207
  Transmission Date: 20140127
  Serious: Yes (Hospitalization)
  Sender: FDA-Public Use
  Company Number: IT-PFIZER INC-2012179553

PATIENT
  Age: 25 Year
  Sex: Male

DRUGS (3)
  1. ZOLOFT [Suspect]
     Dosage: 10 TABLET
     Route: 048
     Dates: start: 20120523, end: 20120523
  2. TAVOR [Suspect]
     Dosage: 5 TABLETS
     Route: 048
     Dates: start: 20120523, end: 20120523
  3. RISPERDAL [Suspect]
     Dosage: 20 MG, SINGLE
     Route: 048
     Dates: start: 20120523, end: 20120523

REACTIONS (2)
  - Self injurious behaviour [Unknown]
  - Intentional overdose [Unknown]
